FAERS Safety Report 6785806-6 (Version None)
Quarter: 2010Q2

REPORT INFORMATION
  Report Type: 
  Country: None (occurrence: None)
  Receive Date: 20100622
  Receipt Date: 20100622
  Transmission Date: 20101027
  Serious: Yes (Hospitalization)
  Sender: FDA-Public Use
  Company Number: None

PATIENT
  Age: 69 Year
  Sex: Female
  Weight: 50 kg

DRUGS (17)
  1. DIGOXIN [Suspect]
     Indication: CARDIAC FAILURE CONGESTIVE
     Dosage: 0.125MG DAILY PO CHRONIC
     Route: 048
  2. M.V.I. [Concomitant]
  3. AMIODARONE [Concomitant]
  4. VIT C [Concomitant]
  5. ASPIRIN [Concomitant]
  6. LIPITOR [Concomitant]
  7. BACLOFEN [Concomitant]
  8. CARVEDILOL [Concomitant]
  9. TUSSIONEX [Concomitant]
  10. LEXAPARO [Concomitant]
  11. FOLIC ACID [Concomitant]
  12. LASIX [Concomitant]
  13. NIFEREX [Concomitant]
  14. PROTONIX [Concomitant]
  15. RAMIPRIL [Concomitant]
  16. ALDACTONE [Concomitant]
  17. ZINC SULFATE [Concomitant]

REACTIONS (5)
  - CARDIOACTIVE DRUG LEVEL INCREASED [None]
  - HYPERKALAEMIA [None]
  - RENAL FAILURE ACUTE [None]
  - SOMNOLENCE [None]
  - URINARY TRACT INFECTION [None]
